FAERS Safety Report 23454383 (Version 2)
Quarter: 2024Q1

REPORT INFORMATION
  Report Type: Report from Study
  Country: CN (occurrence: CN)
  Receive Date: 20240130
  Receipt Date: 20240305
  Transmission Date: 20240409
  Serious: Yes (Other)
  Sender: FDA-Public Use
  Company Number: CN-SERVIER-S24000408

PATIENT

DRUGS (1)
  1. IVABRADINE [Suspect]
     Active Substance: IVABRADINE
     Indication: Cardiac failure chronic
     Dosage: UNK
     Route: 065

REACTIONS (13)
  - Cardiac failure [Unknown]
  - Cardiac failure chronic [Unknown]
  - Ventricular extrasystoles [Unknown]
  - Myocardial infarction [Unknown]
  - Palpitations [Unknown]
  - Dermatitis allergic [Unknown]
  - Sinus bradycardia [Unknown]
  - Photopsia [Unknown]
  - Atrial fibrillation [Unknown]
  - Hypotension [Unknown]
  - Atrioventricular block second degree [Unknown]
  - Bradycardia [Unknown]
  - Electrocardiogram QT prolonged [Unknown]
